FAERS Safety Report 4751534-1 (Version None)
Quarter: 2005Q3

REPORT INFORMATION
  Report Type: 
  Country: None (occurrence: None)
  Receive Date: 20050822
  Receipt Date: 20050811
  Transmission Date: 20060218
  Serious: Yes (Hospitalization)
  Sender: FDA-Public Use
  Company Number: 230010M05ESP

PATIENT
  Age: 36 Year
  Sex: Male
  Weight: 93 kg

DRUGS (1)
  1. REBIF [Suspect]
     Indication: MULTIPLE SCLEROSIS
     Dosage: 22 MCG, 3 IN 1 WEEKS, SUBCUTANEOUS
     Route: 058
     Dates: start: 20050120

REACTIONS (3)
  - ACUTE MYOCARDIAL INFARCTION [None]
  - DILATATION ATRIAL [None]
  - VENTRICULAR HYPOKINESIA [None]
